FAERS Safety Report 16823300 (Version 7)
Quarter: 2021Q3

REPORT INFORMATION
  Report Type: Spontaneous
  Country: JP (occurrence: JP)
  Receive Date: 20190918
  Receipt Date: 20210728
  Transmission Date: 20211014
  Serious: Yes (Other)
  Sender: FDA-Public Use
  Company Number: JP-BRISTOL-MYERS SQUIBB COMPANY-BMS-2019-089467

PATIENT
  Age: 80 Year
  Sex: Male

DRUGS (2)
  1. OPDIVO [Suspect]
     Active Substance: NIVOLUMAB
     Indication: RENAL CELL CARCINOMA
     Dosage: 240 MILLIGRAM, Q3WK
     Route: 041
     Dates: start: 20190611, end: 20190702
  2. YERVOY [Suspect]
     Active Substance: IPILIMUMAB
     Indication: RENAL CELL CARCINOMA
     Dosage: 1 MILLIGRAM/KILOGRAM, Q3WK
     Route: 041
     Dates: start: 20190611, end: 20190702

REACTIONS (11)
  - Stevens-Johnson syndrome [Unknown]
  - Fall [Unknown]
  - Spinal compression fracture [Unknown]
  - Rash pruritic [Recovering/Resolving]
  - Drug eruption [Unknown]
  - Erythema multiforme [Recovering/Resolving]
  - Adrenal insufficiency [Recovering/Resolving]
  - Malaise [Recovering/Resolving]
  - Hypopituitarism [Unknown]
  - Pyrexia [Recovering/Resolving]
  - Pruritus [Recovering/Resolving]

NARRATIVE: CASE EVENT DATE: 20190704
